FAERS Safety Report 7041881-5 (Version None)
Quarter: 2010Q4

REPORT INFORMATION
  Report Type: 
  Country: None (occurrence: None)
  Receive Date: 20101013
  Receipt Date: 20100119
  Transmission Date: 20110411
  Serious: No
  Sender: FDA-Public Use
  Company Number: US-ASTRAZENECA-2010SE02458

PATIENT
  Age: 56 Year
  Sex: Male
  Weight: 77.1 kg

DRUGS (3)
  1. SYMBICORT [Suspect]
     Indication: ASTHMA
     Dosage: 160/4.5, 1 PUFFS
     Route: 055
  2. SYMBICORT [Suspect]
     Indication: CHRONIC OBSTRUCTIVE PULMONARY DISEASE
     Dosage: 160/4.5, 1 PUFFS
     Route: 055
  3. SYMBICORT [Suspect]
     Indication: BRONCHIAL HYPERREACTIVITY
     Dosage: 160/4.5, 1 PUFFS
     Route: 055

REACTIONS (2)
  - GLUCOSE TOLERANCE IMPAIRED [None]
  - OXYGEN SUPPLEMENTATION [None]
